FAERS Safety Report 8433396-4 (Version None)
Quarter: 2012Q2

REPORT INFORMATION
  Report Type: 
  Country: None (occurrence: None)
  Receive Date: 20120613
  Receipt Date: 20120608
  Transmission Date: 20120825
  Serious: Yes (Other)
  Sender: FDA-Public Use
  Company Number: FR-GILEAD-2012-0055152

PATIENT
  Age: 37 Year
  Sex: Female

DRUGS (7)
  1. ATRIPLA [Suspect]
     Indication: HIV INFECTION
     Dosage: UNK
     Route: 048
     Dates: start: 20100928
  2. TRUVADA [Suspect]
     Dosage: UNK
     Route: 048
     Dates: start: 20090101, end: 20100928
  3. TRUVADA [Suspect]
     Indication: HIV INFECTION
     Dosage: UNK
     Route: 048
     Dates: start: 20070801, end: 20081201
  4. EFAVIRENZ [Concomitant]
     Dosage: UNK
     Dates: start: 20050801
  5. REYATAZ [Suspect]
     Indication: HIV INFECTION
     Dosage: UNK
     Route: 048
     Dates: start: 20090106, end: 20100928
  6. ABACAVIR SULFATE/LAMIVUDINE [Concomitant]
     Dosage: UNK
     Dates: start: 20081201
  7. NORVIR [Suspect]
     Indication: HIV INFECTION
     Dosage: UNK
     Route: 048
     Dates: start: 20100928

REACTIONS (3)
  - UNEVALUABLE EVENT [None]
  - VERTIGO [None]
  - AUTOIMMUNE HEPATITIS [None]
